FAERS Safety Report 8075619-X (Version None)
Quarter: 2012Q1

REPORT INFORMATION
  Report Type: 
  Country: None (occurrence: None)
  Receive Date: 20120127
  Receipt Date: 20110207
  Transmission Date: 20120608
  Serious: No
  Sender: FDA-Public Use
  Company Number: US-GLAXOSMITHKLINE-A0912289A

PATIENT
  Age: 53 Year
  Sex: Male

DRUGS (9)
  1. KLONOPIN [Concomitant]
  2. ABILIFY [Concomitant]
  3. ZOLOFT [Concomitant]
  4. MEPRON [Suspect]
     Indication: LYME DISEASE
     Dosage: 1TSP TWICE PER DAY
     Route: 048
     Dates: start: 20101025
  5. AZITHROMYCIN [Concomitant]
  6. LICORICE [Concomitant]
  7. DOXYCYCLINE [Concomitant]
  8. DEXEDRINE [Concomitant]
  9. COD LIVER OIL [Concomitant]

REACTIONS (4)
  - PRODUCT QUALITY ISSUE [None]
  - CHEST PAIN [None]
  - MUSCULOSKELETAL CHEST PAIN [None]
  - ABDOMINAL PAIN [None]
